FAERS Safety Report 7095298-8 (Version None)
Quarter: 2010Q4

REPORT INFORMATION
  Report Type: 
  Country: None (occurrence: None)
  Receive Date: 20101111
  Receipt Date: 20101101
  Transmission Date: 20110411
  Serious: Yes (Disabling, Other)
  Sender: FDA-Public Use
  Company Number: JP-BAYER-JP-2007-004513

PATIENT
  Age: 28 Year
  Sex: Female
  Weight: 51 kg

DRUGS (16)
  1. BETAFERON [Suspect]
     Indication: MULTIPLE SCLEROSIS
     Dosage: UNIT DOSE: 8 MIU
     Route: 058
     Dates: start: 19970428, end: 19970511
  2. PREDNISOLONE [Concomitant]
     Indication: MULTIPLE SCLEROSIS
     Dosage: UNIT DOSE: 15 MG
     Route: 048
     Dates: start: 19970424, end: 19970429
  3. TEGRETOL [Concomitant]
     Indication: DYSAESTHESIA
     Route: 048
  4. GASTER [Concomitant]
     Indication: PROPHYLAXIS AGAINST GASTROINTESTINAL ULCER
     Dosage: UNIT DOSE: 20 MG
     Route: 048
  5. SELBEX [Concomitant]
     Indication: PROPHYLAXIS AGAINST GASTROINTESTINAL ULCER
     Dosage: UNIT DOSE: 50 MG
     Route: 048
  6. ALFAROL [Concomitant]
     Indication: OSTEOPOROSIS PROPHYLAXIS
     Dosage: UNIT DOSE: 0.5 ?G
     Route: 048
  7. DEPAS [Concomitant]
     Dosage: UNIT DOSE: 1 MG
     Route: 048
  8. SERENACE [Concomitant]
     Dosage: UNIT DOSE: 0.75 MG
     Route: 048
  9. AMOBAN [Concomitant]
     Dosage: UNIT DOSE: 7.5 MG
     Route: 048
  10. EURODIN [Concomitant]
     Dosage: UNIT DOSE: 2 MG
     Route: 048
  11. ASPARA K [Concomitant]
     Indication: HYPOKALAEMIA
     Route: 048
  12. VITAMEDIN [Concomitant]
     Route: 048
  13. PURSENNID [Concomitant]
     Route: 048
  14. BENZALIN [Concomitant]
     Indication: INSOMNIA
     Route: 048
  15. MAGNESIUM OXIDE [Concomitant]
     Indication: CONSTIPATION
     Route: 048
  16. MEVALOTIN [Concomitant]
     Indication: HYPERCHOLESTEROLAEMIA
     Route: 048

REACTIONS (8)
  - HEADACHE [None]
  - MYELITIS TRANSVERSE [None]
  - NAUSEA [None]
  - NEUROMYELITIS OPTICA [None]
  - OPTIC NEURITIS [None]
  - PARAPLEGIA [None]
  - PYREXIA [None]
  - RASH [None]
